FAERS Safety Report 4847068-6 (Version None)
Quarter: 2005Q4

REPORT INFORMATION
  Report Type: 
  Country: None (occurrence: None)
  Receive Date: 20051206
  Receipt Date: 20051206
  Transmission Date: 20060501
  Serious: Yes (Death)
  Sender: FDA-Public Use
  Company Number: None

PATIENT
  Age: 79 Year
  Sex: Female
  Weight: 47.1741 kg

DRUGS (1)
  1. RETUXIMAB [Suspect]

REACTIONS (7)
  - CHILLS [None]
  - DIALYSIS [None]
  - HEPATIC ENCEPHALOPATHY [None]
  - INFUSION RELATED REACTION [None]
  - LIVER DISORDER [None]
  - MULTI-ORGAN FAILURE [None]
  - THROMBOSIS [None]
